FAERS Safety Report 23752677 (Version 1)
Quarter: 2024Q2

REPORT INFORMATION
  Report Type: Spontaneous
  Country: US (occurrence: US)
  Receive Date: 20240417
  Receipt Date: 20240417
  Transmission Date: 20240715
  Serious: No
  Sender: FDA-Public Use
  Company Number: US-PFIZER INC-202400087120

PATIENT
  Age: 73 Year
  Sex: Female

DRUGS (13)
  1. IBRANCE [Suspect]
     Active Substance: PALBOCICLIB
     Indication: Breast cancer
     Dosage: 125 MG, CYCLIC: 3 WEEKS ON, 1 WEEK OFF
     Route: 048
  2. LETROZOLE [Concomitant]
     Active Substance: LETROZOLE
     Dosage: 2.5 MILLIGRAMS
  3. LEVOTHYROXINE [Concomitant]
     Active Substance: LEVOTHYROXINE\LEVOTHYROXINE SODIUM
     Dosage: 75 MILLIGRAMS
  4. ANORO ELLIPTA [Concomitant]
     Active Substance: UMECLIDINIUM BROMIDE\VILANTEROL TRIFENATATE
     Dosage: ADDITIONAL INFORMATION FOR OTHER MEDICINES ANORO ELLIPTA: INHALER
  5. POTASSIUM [Concomitant]
     Active Substance: POTASSIUM
     Dosage: 10 MILLIGRAM
  6. CHLORHEXIDINE [Concomitant]
     Active Substance: CHLORHEXIDINE\CHLORHEXIDINE GLUCONATE
  7. VALTREX [Concomitant]
     Active Substance: VALACYCLOVIR HYDROCHLORIDE
     Dosage: 1 GRAM
  8. ELIQUIS [Concomitant]
     Active Substance: APIXABAN
     Dosage: 5 MG
  9. ISOSORBIDE MONONITRATE [Concomitant]
     Active Substance: ISOSORBIDE MONONITRATE
     Dosage: 30 MG
  10. MEGESTROL [Concomitant]
     Active Substance: MEGESTROL
     Dosage: 40 MG
  11. ROSUVASTATIN [Concomitant]
     Active Substance: ROSUVASTATIN
  12. CLOPIDOGREL [Concomitant]
     Active Substance: CLOPIDOGREL BISULFATE
  13. METOPROLOL TARTRATE [Concomitant]
     Active Substance: METOPROLOL TARTRATE

REACTIONS (5)
  - Red blood cell count decreased [Unknown]
  - White blood cell count decreased [Unknown]
  - Full blood count decreased [Unknown]
  - Herpes virus infection [Unknown]
  - Off label use [Unknown]
